FAERS Safety Report 18482650 (Version 2)
Quarter: 2020Q4

REPORT INFORMATION
  Report Type: Spontaneous
  Country: US (occurrence: US)
  Receive Date: 20201109
  Receipt Date: 20201119
  Transmission Date: 20210114
  Serious: Yes (Other)
  Sender: FDA-Public Use
  Company Number: US-SA-2020SA309464

PATIENT

DRUGS (8)
  1. CYCLOBENZAPRINE HCL [Concomitant]
     Active Substance: CYCLOBENZAPRINE HYDROCHLORIDE
     Dosage: 5 MG TWICE DAILY
     Route: 065
  2. INSULIN GLARGINE [Suspect]
     Active Substance: INSULIN GLARGINE
     Dosage: 23 IU, QD
     Route: 058
     Dates: start: 20141229
  3. FLUCONAZOLE. [Concomitant]
     Active Substance: FLUCONAZOLE
     Dosage: 150 MG DAILY
     Route: 065
  4. ROSUVASTATIN. [Concomitant]
     Active Substance: ROSUVASTATIN
     Dosage: 5MG DAILY
     Route: 065
  5. CARVEDILOL. [Concomitant]
     Active Substance: CARVEDILOL
     Dosage: 18.75 MG TWICE DAILY
     Route: 065
  6. METFORMIN [Concomitant]
     Active Substance: METFORMIN HYDROCHLORIDE
     Dosage: 200 MG DAILY
     Route: 065
  7. PRAZOSIN. [Concomitant]
     Active Substance: PRAZOSIN
     Dosage: 5 MG, QD
     Route: 065
     Dates: start: 20200803, end: 20200820
  8. SERTRALINE [Concomitant]
     Active Substance: SERTRALINE HYDROCHLORIDE
     Dosage: 25MG DAILY
     Route: 065
     Dates: start: 20200803, end: 20200820

REACTIONS (15)
  - Dizziness [Unknown]
  - Intestinal infarction [Unknown]
  - Blood glucose decreased [Unknown]
  - Cystitis interstitial [Unknown]
  - Mesenteric vascular insufficiency [Unknown]
  - Disorientation [Unknown]
  - Bacillus infection [Unknown]
  - Gastrooesophageal reflux disease [Unknown]
  - Hypoglycaemia [Unknown]
  - Rotator cuff syndrome [Unknown]
  - Empty sella syndrome [Unknown]
  - Oesophagitis [Unknown]
  - Ileostomy [Unknown]
  - Clostridium difficile infection [Unknown]
  - Appendicectomy [Recovered/Resolved]

NARRATIVE: CASE EVENT DATE: 2017
